FAERS Safety Report 23398607 (Version 1)
Quarter: 2024Q1

REPORT INFORMATION
  Report Type: Spontaneous
  Country: US (occurrence: US)
  Receive Date: 20240112
  Receipt Date: 20240112
  Transmission Date: 20240409
  Serious: No
  Sender: FDA-Public Use
  Company Number: US-SANDOZ-SDZ2024US003765

PATIENT
  Sex: Male

DRUGS (1)
  1. RITALIN LA [Suspect]
     Active Substance: METHYLPHENIDATE HYDROCHLORIDE
     Indication: Product used for unknown indication
     Dosage: 20 MG
     Route: 065

REACTIONS (2)
  - Adverse drug reaction [Unknown]
  - Product supply issue [Unknown]
